FAERS Safety Report 11419458 (Version 1)
Quarter: 2015Q3

REPORT INFORMATION
  Report Type: Report from Study
  Country: US (occurrence: US)
  Receive Date: 20150826
  Receipt Date: 20150826
  Transmission Date: 20151125
  Serious: Yes (Hospitalization, Other)
  Sender: FDA-Public Use
  Company Number: US-ABBVIE-15K-163-1444484-00

PATIENT
  Age: 51 Year
  Sex: Male

DRUGS (5)
  1. PRILOSEC [Concomitant]
     Active Substance: OMEPRAZOLE MAGNESIUM
     Indication: GASTROOESOPHAGEAL REFLUX DISEASE
  2. AZULFIDINE [Concomitant]
     Active Substance: SULFASALAZINE
     Indication: CROHN^S DISEASE
  3. CELEXA [Concomitant]
     Active Substance: CITALOPRAM HYDROBROMIDE
     Indication: DEPRESSION
  4. FERROUS SULFATE [Concomitant]
     Active Substance: FERROUS SULFATE\FERROUS SULFATE, DRIED
     Indication: PRODUCT USED FOR UNKNOWN INDICATION
  5. HUMIRA [Suspect]
     Active Substance: ADALIMUMAB
     Indication: CROHN^S DISEASE
     Route: 065
     Dates: start: 20150623

REACTIONS (7)
  - Ileostomy [Unknown]
  - Muscle spasms [Recovered/Resolved]
  - Gastrointestinal stoma output abnormal [Recovered/Resolved]
  - Hypovolaemia [Recovered/Resolved]
  - Acute kidney injury [Recovered/Resolved]
  - Fatigue [Not Recovered/Not Resolved]
  - Dehydration [Recovered/Resolved]

NARRATIVE: CASE EVENT DATE: 2015
